FAERS Safety Report 7460264-7 (Version None)
Quarter: 2011Q2

REPORT INFORMATION
  Report Type: 
  Country: None (occurrence: None)
  Receive Date: 20110427
  Receipt Date: 20110418
  Transmission Date: 20111010
  Serious: Yes (Hospitalization, Other)
  Sender: FDA-Public Use
  Company Number: TPA2011A00416

PATIENT
  Age: 83 Year
  Sex: Male
  Weight: 102.5129 kg

DRUGS (7)
  1. LISINOPRIL [Concomitant]
  2. ULORIC [Suspect]
     Indication: GOUT
     Dosage: 40 MG, 1 IN 1 D, PER ORAL
     Route: 048
     Dates: start: 20101108, end: 20110101
  3. AMIODARONE (AMIODARONE) [Concomitant]
  4. FUROSEMIDE [Concomitant]
  5. DIGOXIN [Concomitant]
  6. ASPIRIN [Concomitant]
  7. PROBENECID [Concomitant]

REACTIONS (6)
  - MYOCARDIAL INFARCTION [None]
  - GASTROENTERITIS [None]
  - AORTIC VALVE DISEASE [None]
  - BLOOD BILIRUBIN INCREASED [None]
  - ALANINE AMINOTRANSFERASE INCREASED [None]
  - POST PROCEDURAL PNEUMONIA [None]
